FAERS Safety Report 11201329 (Version 1)
Quarter: 2015Q2

REPORT INFORMATION
  Report Type: Spontaneous
  Country: US (occurrence: None)
  Receive Date: 20150618
  Receipt Date: 20150618
  Transmission Date: 20150821
  Serious: Yes (Death)
  Sender: FDA-Public Use
  Company Number: None

PATIENT
  Age: 76 Year
  Sex: Female
  Weight: 107.05 kg

DRUGS (13)
  1. DIOVAN [Concomitant]
     Active Substance: VALSARTAN
  2. METROPROL [Concomitant]
  3. LEVETIRACETA (KEPPRA) [Concomitant]
  4. MULTIVITAMIN W/MINERAL [Concomitant]
  5. AMLODIPINE [Concomitant]
     Active Substance: AMLODIPINE BESYLATE
  6. TRAZODONE [Concomitant]
     Active Substance: TRAZODONE HYDROCHLORIDE
  7. SANCTURA [Suspect]
     Active Substance: TROSPIUM CHLORIDE
     Indication: INCONTINENCE
     Route: 048
     Dates: start: 20140403, end: 20140417
  8. DULOXETINE [Concomitant]
     Active Substance: DULOXETINE
  9. OMEPRAZOLE. [Concomitant]
     Active Substance: OMEPRAZOLE
  10. BACTRIM [Concomitant]
     Active Substance: SULFAMETHOXAZOLE\TRIMETHOPRIM
  11. OXYBUTYNIN ER [Concomitant]
     Active Substance: OXYBUTYNIN
  12. LEVOTHYROXIN [Concomitant]
     Active Substance: LEVOTHYROXINE
  13. DONEPEZIL (ARICEPT) [Concomitant]

REACTIONS (5)
  - Confusional state [None]
  - Abdominal discomfort [None]
  - Malaise [None]
  - Drug interaction [None]
  - Somnolence [None]
